FAERS Safety Report 4977410-7 (Version None)
Quarter: 2006Q2

REPORT INFORMATION
  Report Type: 
  Country: None (occurrence: None)
  Receive Date: 20060411
  Receipt Date: 20060403
  Transmission Date: 20061013
  Serious: No
  Sender: FDA-Public Use
  Company Number: 2006-140856-NL

PATIENT
  Age: 48 Year
  Sex: Male

DRUGS (3)
  1. MIRTAZAPINE [Suspect]
     Indication: ANXIETY DISORDER
     Dosage: DF
     Route: 048
  2. ROFECOXIB [Concomitant]
  3. ACETAMINOPHEN W/ CODEINE [Concomitant]

REACTIONS (3)
  - LIBIDO DECREASED [None]
  - SEROTONIN SYNDROME [None]
  - SUICIDAL IDEATION [None]
